FAERS Safety Report 18180159 (Version 1)
Quarter: 2020Q3

REPORT INFORMATION
  Report Type: Other
  Country: CA (occurrence: CA)
  Receive Date: 20200821
  Receipt Date: 20200821
  Transmission Date: 20201103
  Serious: Yes (Other)
  Sender: FDA-Public Use
  Company Number: CA-ASTELLAS-2019US026087

PATIENT
  Age: 60 Year
  Sex: Male

DRUGS (4)
  1. FLUCYTOSINE. [Suspect]
     Active Substance: FLUCYTOSINE
     Indication: MENINGITIS CRYPTOCOCCAL
     Route: 048
  2. FLUCYTOSINE. [Suspect]
     Active Substance: FLUCYTOSINE
     Route: 048
  3. AMBISOME [Suspect]
     Active Substance: AMPHOTERICIN B
     Indication: MENINGITIS CRYPTOCOCCAL
     Route: 042
  4. FLUCONAZOLE. [Suspect]
     Active Substance: FLUCONAZOLE
     Indication: CRYPTOCOCCAL FUNGAEMIA
     Route: 042

REACTIONS (2)
  - Drug ineffective [Unknown]
  - Off label use [Unknown]
